FAERS Safety Report 17652712 (Version 1)
Quarter: 2020Q2

REPORT INFORMATION
  Report Type: Spontaneous
  Country: NL (occurrence: NL)
  Receive Date: 20200409
  Receipt Date: 20200409
  Transmission Date: 20200713
  Serious: Yes (Other)
  Sender: FDA-Public Use
  Company Number: NL-ABBVIE-19K-114-3135149-00

PATIENT

DRUGS (2)
  1. IMBRUVICA [Suspect]
     Active Substance: IBRUTINIB
     Indication: CHRONIC LYMPHOCYTIC LEUKAEMIA
     Dosage: DOSAGE FORM: UNSPECIFIED
     Route: 048
  2. IMBRUVICA [Suspect]
     Active Substance: IBRUTINIB
     Indication: LYMPHOCYTIC LYMPHOMA

REACTIONS (18)
  - Skin disorder [Unknown]
  - Administration site reaction [Unknown]
  - Unevaluable event [Unknown]
  - Lymphatic disorder [Unknown]
  - Musculoskeletal disorder [Unknown]
  - Connective tissue disorder [Unknown]
  - Blood disorder [Unknown]
  - Thrombocytopenia [Unknown]
  - Urinary tract disorder [Unknown]
  - Infection [Unknown]
  - Infestation [Unknown]
  - Gastrointestinal disorder [Unknown]
  - Malnutrition [Unknown]
  - Nervous system disorder [Unknown]
  - Anaemia [Unknown]
  - Cardiovascular disorder [Unknown]
  - Metabolic disorder [Unknown]
  - Renal disorder [Unknown]
